FAERS Safety Report 21813081 (Version 1)
Quarter: 2023Q1

REPORT INFORMATION
  Report Type: Spontaneous
  Country: US (occurrence: None)
  Receive Date: 20230102
  Receipt Date: 20230102
  Transmission Date: 20230418
  Serious: Yes (Death, Life-Threatening, Hospitalization, Disabling, Other)
  Sender: FDA-Public Use
  Company Number: None

PATIENT
  Age: 63 Year
  Sex: Male
  Weight: 54 kg

DRUGS (5)
  1. TRIAMCINOLONE [Suspect]
     Active Substance: TRIAMCINOLONE
     Indication: Arthralgia
     Dosage: OTHER QUANTITY : 2 INJECTION(S);?OTHER FREQUENCY : IN ONE WEEK;?
     Route: 008
     Dates: start: 20221025, end: 20221101
  2. LIDOCAINE [Suspect]
     Active Substance: LIDOCAINE
  3. BUPIVACAINE [Suspect]
     Active Substance: BUPIVACAINE
  4. ACETAMINOPHEN [Concomitant]
     Active Substance: ACETAMINOPHEN
  5. UNSPECIFIED INGREDIENT [Concomitant]
     Active Substance: UNSPECIFIED INGREDIENT

REACTIONS (7)
  - Illness [None]
  - Asthenia [None]
  - Discoloured vomit [None]
  - Chills [None]
  - Gastrointestinal disorder [None]
  - Decreased appetite [None]
  - Blood glucose increased [None]

NARRATIVE: CASE EVENT DATE: 20221102
